FAERS Safety Report 16273145 (Version 1)
Quarter: 2019Q2

REPORT INFORMATION
  Report Type: Spontaneous
  Country: GB (occurrence: GB)
  Receive Date: 20190506
  Receipt Date: 20190506
  Transmission Date: 20190711
  Serious: Yes (Other)
  Sender: FDA-Public Use
  Company Number: GB-AUROBINDO-AUR-APL-2019-021421

PATIENT

DRUGS (11)
  1. MEXILETINE [Interacting]
     Active Substance: MEXILETINE
     Indication: ISCHAEMIC CARDIOMYOPATHY
  2. SACUBITRIL;VALSARTAN [Interacting]
     Active Substance: SACUBITRIL\VALSARTAN
     Indication: ISCHAEMIC CARDIOMYOPATHY
     Dosage: 2 DOSAGE FORM, ONCE A DAY (1 DF (49/51 MG), BID)
     Route: 065
  3. SACUBITRIL [Concomitant]
     Active Substance: SACUBITRIL
     Indication: CARDIAC FAILURE
     Dosage: PATIENT B:  (49/51 MG B.I.D.)
     Route: 065
  4. VALSARTAN. [Concomitant]
     Active Substance: VALSARTAN
     Indication: CARDIAC FAILURE
     Dosage: PATIENT B: SACUBITRIL/VALSARTAN (49/51 MG B.I.D.)
     Route: 065
  5. BISOPROLOL [Suspect]
     Active Substance: BISOPROLOL
     Indication: CARDIAC DISORDER
     Dosage: 5 MILLIGRAM, ONCE A DAY
     Route: 065
  6. BISOPROLOL [Suspect]
     Active Substance: BISOPROLOL
     Indication: ISCHAEMIC CARDIOMYOPATHY
  7. EPLERENONE. [Concomitant]
     Active Substance: EPLERENONE
     Indication: ISCHAEMIC CARDIOMYOPATHY
  8. RAMIPRIL. [Concomitant]
     Active Substance: RAMIPRIL
     Indication: PRODUCT USED FOR UNKNOWN INDICATION
     Dosage: 10 MILLIGRAM, DAILY
     Route: 065
  9. MEXILETINE [Interacting]
     Active Substance: MEXILETINE
     Indication: CARDIAC DISORDER
     Dosage: 600 MILLIGRAM, ONCE A DAY (200 MG, TID)
     Route: 065
  10. EPLERENONE. [Concomitant]
     Active Substance: EPLERENONE
     Indication: CARDIAC DISORDER
     Dosage: 50 MILLIGRAM, ONCE A DAY
     Route: 065
  11. MEXILETINE [Interacting]
     Active Substance: MEXILETINE
     Indication: CARDIAC FAILURE

REACTIONS (5)
  - Fatigue [Unknown]
  - Ventricular tachycardia [Recovered/Resolved]
  - Insomnia [Unknown]
  - Drug intolerance [Unknown]
  - Drug interaction [Unknown]
